FAERS Safety Report 5296194-9 (Version None)
Quarter: 2007Q2

REPORT INFORMATION
  Report Type: 
  Country: None (occurrence: None)
  Receive Date: 20070413
  Receipt Date: 20070412
  Transmission Date: 20071010
  Serious: Yes (Other)
  Sender: FDA-Public Use
  Company Number: EG-GLAXOSMITHKLINE-B0451521A

PATIENT
  Age: 41 Year
  Sex: Male

DRUGS (1)
  1. ZEFFIX [Suspect]
     Indication: HEPATITIS B
     Dosage: 100MG PER DAY
     Route: 048
     Dates: start: 20050601, end: 20061010

REACTIONS (4)
  - ALANINE AMINOTRANSFERASE INCREASED [None]
  - HBV-DNA POLYMERASE INCREASED [None]
  - HEPATITIS B SURFACE ANTIGEN POSITIVE [None]
  - POLYMERASE CHAIN REACTION [None]
